FAERS Safety Report 25802924 (Version 2)
Quarter: 2025Q3

REPORT INFORMATION
  Report Type: Report from Study
  Country: AR (occurrence: AR)
  Receive Date: 20250915
  Receipt Date: 20250924
  Transmission Date: 20251021
  Serious: Yes (Hospitalization)
  Sender: JOHNSON AND JOHNSON
  Company Number: AR-JNJFOC-20250914752

PATIENT
  Age: 73 Year
  Sex: Female
  Weight: 47 kg

DRUGS (2)
  1. OPSUMIT [Suspect]
     Active Substance: MACITENTAN
     Indication: Pulmonary arterial hypertension
     Route: 048
     Dates: start: 20230701
  2. BISOPROLOL FUMARATE [Concomitant]
     Active Substance: BISOPROLOL FUMARATE
     Indication: Product used for unknown indication

REACTIONS (3)
  - Pneumonia [Recovering/Resolving]
  - Pleural effusion [Recovering/Resolving]
  - Generalised oedema [Recovering/Resolving]

NARRATIVE: CASE EVENT DATE: 20250801
